FAERS Safety Report 17238412 (Version 1)
Quarter: 2020Q1

REPORT INFORMATION
  Report Type: Spontaneous
  Country: CA (occurrence: CA)
  Receive Date: 20200106
  Receipt Date: 20200106
  Transmission Date: 20200409
  Serious: Yes (Hospitalization, Other)
  Sender: FDA-Public Use
  Company Number: CA-TEVA-2020-CA-1163266

PATIENT
  Age: 46 Year
  Sex: Female

DRUGS (19)
  1. FLOVENT [Concomitant]
     Active Substance: FLUTICASONE PROPIONATE
     Route: 065
  2. VENTOLIN [Concomitant]
     Active Substance: ALBUTEROL SULFATE
     Route: 065
  3. METHOTREXATE. [Suspect]
     Active Substance: METHOTREXATE
     Route: 065
  4. PREDNISONE. [Concomitant]
     Active Substance: PREDNISONE
     Dosage: 15 MILLIGRAM DAILY;
     Route: 048
  5. VITAMIN B12 [Concomitant]
     Active Substance: CYANOCOBALAMIN
     Dosage: 1200 MICROGRAM DAILY;
     Route: 048
  6. MUPIROCIN CALCIUM DIHYDRATE [Concomitant]
     Active Substance: MUPIROCIN CALCIUM
     Indication: NASAL ULCER
     Route: 065
  7. PANTOLOC [PANTOPRAZOLE] [Concomitant]
     Active Substance: PANTOPRAZOLE SODIUM
     Dosage: 40 MILLIGRAM DAILY;
     Route: 048
  8. IRON SUCROSE [Concomitant]
     Active Substance: IRON SUCROSE
     Route: 042
  9. B10 COMPLEX [Concomitant]
     Dosage: 1200 MICROGRAM DAILY;
     Route: 048
  10. JANUVIA [Concomitant]
     Active Substance: SITAGLIPTIN PHOSPHATE
     Dosage: 100 MILLIGRAM DAILY;
     Route: 048
  11. NASONEX [Concomitant]
     Active Substance: MOMETASONE FUROATE
     Route: 065
  12. VITAMIN D3 [Concomitant]
     Active Substance: CHOLECALCIFEROL
     Dosage: 1000 IU (INTERNATIONAL UNIT) DAILY;
     Route: 048
  13. METHOTREXATE. [Suspect]
     Active Substance: METHOTREXATE
     Indication: PRODUCT USED FOR UNKNOWN INDICATION
     Route: 065
  14. LOMOTIL [LOPERAMIDE HYDROCHLORIDE] [Concomitant]
     Route: 065
  15. ROSUVASTATIN CALCIUM. [Concomitant]
     Active Substance: ROSUVASTATIN CALCIUM
     Dosage: 20 MILLIGRAM DAILY;
     Route: 048
  16. ACETAMINOPHEN. [Concomitant]
     Active Substance: ACETAMINOPHEN
     Dosage: 6 DOSAGE FORMS DAILY;
     Route: 048
  17. ESTROGEL [Concomitant]
     Active Substance: ESTRADIOL
     Route: 061
  18. ONDANSETRON [Concomitant]
     Active Substance: ONDANSETRON
     Route: 065
  19. ORACORT [PREDNISONE] [Concomitant]
     Active Substance: PREDNISONE
     Indication: MOUTH ULCERATION
     Route: 065

REACTIONS (22)
  - Intervertebral disc degeneration [Unknown]
  - Natural killer cell count increased [Unknown]
  - Pain in extremity [Unknown]
  - Varicella [Unknown]
  - Drug ineffective [Unknown]
  - Sleep apnoea syndrome [Unknown]
  - Vaginal cellulitis [Unknown]
  - Sepsis [Unknown]
  - Steroid diabetes [Unknown]
  - Diverticulum [Unknown]
  - Mammogram abnormal [Unknown]
  - Cataract [Unknown]
  - Musculoskeletal pain [Unknown]
  - Nausea [Unknown]
  - Pyrexia [Unknown]
  - Haemangioma [Unknown]
  - Haematoma infection [Unknown]
  - Vomiting [Unknown]
  - Nephrolithiasis [Unknown]
  - Umbilical hernia [Unknown]
  - Arthralgia [Unknown]
  - Kidney infection [Unknown]
